FAERS Safety Report 9731825 (Version 1)
Quarter: 2013Q4

REPORT INFORMATION
  Report Type: Spontaneous
  Country: US (occurrence: None)
  Receive Date: 20131204
  Receipt Date: 20131204
  Transmission Date: 20140711
  Serious: No
  Sender: FDA-Public Use
  Company Number: None

PATIENT
  Age: 77 Year
  Sex: Female

DRUGS (9)
  1. ACETAMINOPHEN EXTENDED RELEASE [Suspect]
     Indication: ARTHRITIS
     Dosage: 650 MG 2 CAPLETS TWICE DAILY BY MOUTH
     Route: 048
     Dates: start: 20130920, end: 20131107
  2. GLUCOTROL [Concomitant]
  3. GLUCOPHAGE [Concomitant]
  4. LANTUS [Concomitant]
  5. NORVASC [Concomitant]
  6. IMDUR [Concomitant]
  7. TENORMIN [Concomitant]
  8. CATAPRES [Concomitant]
  9. ASPIRIN [Concomitant]

REACTIONS (2)
  - Product solubility abnormal [None]
  - Medication residue present [None]
